FAERS Safety Report 5513087-X (Version None)
Quarter: 2007Q4

REPORT INFORMATION
  Report Type: 
  Country: None (occurrence: None)
  Receive Date: 20071112
  Receipt Date: 20071015
  Transmission Date: 20080405
  Serious: No
  Sender: FDA-Public Use
  Company Number: US-ABBOTT-07P-163-0421112-00

PATIENT
  Sex: Male
  Weight: 86.26 kg

DRUGS (5)
  1. TRICOR [Suspect]
     Indication: BLOOD TRIGLYCERIDES INCREASED
     Route: 048
     Dates: start: 20070506, end: 20070605
  2. TRICOR [Suspect]
     Route: 048
     Dates: start: 20070919
  3. INEGY [Suspect]
     Indication: BLOOD CHOLESTEROL INCREASED
     Dosage: 10/40
     Route: 048
     Dates: start: 20041001, end: 20070605
  4. INEGY [Suspect]
     Dates: start: 20070614, end: 20070918
  5. ATORVASTATIN CALCIUM [Concomitant]
     Indication: BLOOD CHOLESTEROL INCREASED
     Route: 048
     Dates: start: 20070919

REACTIONS (3)
  - HEPATIC ENZYME INCREASED [None]
  - PRURITUS [None]
  - PYREXIA [None]
